FAERS Safety Report 5015980-3 (Version None)
Quarter: 2006Q2

REPORT INFORMATION
  Report Type: 
  Country: None (occurrence: None)
  Receive Date: 20060414
  Receipt Date: 20060310
  Transmission Date: 20061013
  Serious: No
  Sender: FDA-Public Use
  Company Number: 2006SP001197

PATIENT
  Age: 59 Year
  Sex: Female
  Weight: 58.9676 kg

DRUGS (6)
  1. LUNESTA [Suspect]
     Indication: INSOMNIA
     Dosage: SEE IMAGE
     Route: 048
     Dates: start: 20051201, end: 20060312
  2. LUNESTA [Suspect]
     Indication: INSOMNIA
     Dosage: SEE IMAGE
     Route: 048
     Dates: start: 20050901
  3. MULTIVITAMIN [Concomitant]
  4. ALEVE (CAPLET) [Concomitant]
  5. FOSAMAX [Concomitant]
  6. ECOTRIN [Concomitant]

REACTIONS (2)
  - DRUG EFFECT DECREASED [None]
  - DYSGEUSIA [None]
